FAERS Safety Report 16132754 (Version 4)
Quarter: 2019Q2

REPORT INFORMATION
  Report Type: Spontaneous
  Country: GB (occurrence: GB)
  Receive Date: 20190329
  Receipt Date: 20190507
  Transmission Date: 20190711
  Serious: Yes (Hospitalization, Other)
  Sender: FDA-Public Use
  Company Number: GB-JNJFOC-20190330065

PATIENT
  Age: 14 Year
  Sex: Male

DRUGS (3)
  1. PARACETAMOL [Suspect]
     Active Substance: ACETAMINOPHEN
     Route: 048
  2. PARACETAMOL [Suspect]
     Active Substance: ACETAMINOPHEN
     Indication: PRODUCT USED FOR UNKNOWN INDICATION
     Route: 048
  3. PHENYTOIN. [Suspect]
     Active Substance: PHENYTOIN
     Indication: PRODUCT USED FOR UNKNOWN INDICATION
     Dosage: 200MG, BID (TWICE A DAY)
     Route: 065

REACTIONS (7)
  - Abdominal pain upper [Unknown]
  - Overdose [Unknown]
  - Vomiting [Unknown]
  - Encephalopathy [Recovered/Resolved]
  - Metabolic acidosis [Unknown]
  - Liver function test abnormal [Recovered/Resolved]
  - Hepatic failure [Recovered/Resolved]
